FAERS Safety Report 16998367 (Version 1)
Quarter: 2019Q4

REPORT INFORMATION
  Report Type: Spontaneous
  Country: GB (occurrence: GB)
  Receive Date: 20191106
  Receipt Date: 20191106
  Transmission Date: 20200122
  Serious: Yes (Other)
  Sender: FDA-Public Use
  Company Number: GB-ACCORD-160015

PATIENT
  Age: 23 Year
  Sex: Female
  Weight: 101.3 kg

DRUGS (11)
  1. RANITIDINE. [Concomitant]
     Active Substance: RANITIDINE
  2. LANTUS [Concomitant]
     Active Substance: INSULIN GLARGINE
  3. TOPIRAMATE. [Concomitant]
     Active Substance: TOPIRAMATE
  4. ZOLPIDEM [Concomitant]
     Active Substance: ZOLPIDEM TARTRATE
  5. FORTISIP [Concomitant]
     Active Substance: CARBOHYDRATES\FATTY ACIDS\MINERALS\PROTEIN\VITAMINS
  6. APIDRA [Concomitant]
     Active Substance: INSULIN GLULISINE
  7. GENERICS UK ESOMEPRAZOLE [Concomitant]
     Dosage: GASTRO-RESISTANT
  8. NAPROXEN. [Concomitant]
     Active Substance: NAPROXEN
  9. ZOPICLONE [Concomitant]
     Active Substance: ZOPICLONE
  10. AMITRIPTYLINE [Suspect]
     Active Substance: AMITRIPTYLINE
     Indication: INTRACRANIAL PRESSURE INCREASED
     Route: 048
     Dates: start: 20180511
  11. DULOXETINE. [Concomitant]
     Active Substance: DULOXETINE

REACTIONS (3)
  - Off label use [Unknown]
  - Sleep terror [Not Recovered/Not Resolved]
  - Abnormal dreams [Unknown]

NARRATIVE: CASE EVENT DATE: 20180513
